FAERS Safety Report 6360409-6 (Version None)
Quarter: 2009Q3

REPORT INFORMATION
  Report Type: 
  Country: None (occurrence: None)
  Receive Date: 20090917
  Receipt Date: 20090909
  Transmission Date: 20100115
  Serious: Yes (Other)
  Sender: FDA-Public Use
  Company Number: US-AMGEN-QUU363828

PATIENT
  Sex: Female

DRUGS (2)
  1. ENBREL [Suspect]
     Indication: RHEUMATOID ARTHRITIS
     Route: 058
     Dates: start: 20090701
  2. METHOTREXATE [Concomitant]

REACTIONS (7)
  - ABDOMINAL PAIN [None]
  - ARTHROPOD BITE [None]
  - FEELING HOT [None]
  - FUNGAL SKIN INFECTION [None]
  - JOINT STIFFNESS [None]
  - PAIN IN EXTREMITY [None]
  - STAPHYLOCOCCAL INFECTION [None]
